FAERS Safety Report 20015862 (Version 1)
Quarter: 2021Q4

REPORT INFORMATION
  Report Type: Spontaneous
  Country: US (occurrence: None)
  Receive Date: 20211102
  Receipt Date: 20211102
  Transmission Date: 20220303
  Serious: Yes (Other)
  Sender: FDA-Public Use
  Company Number: None

PATIENT
  Age: 26 Year
  Sex: Female
  Weight: 57.15 kg

DRUGS (1)
  1. CASIRIVIMAB\IMDEVIMAB [Suspect]
     Active Substance: CASIRIVIMAB\IMDEVIMAB
     Indication: COVID-19
     Dosage: OTHER FREQUENCY : ONCE;?
     Route: 041
     Dates: start: 20211027

REACTIONS (10)
  - Paraesthesia oral [None]
  - Anxiety [None]
  - Chest discomfort [None]
  - Dyspnoea [None]
  - Exposure during pregnancy [None]
  - Presyncope [None]
  - Infusion related reaction [None]
  - Heart rate increased [None]
  - Tearfulness [None]
  - Near death experience [None]

NARRATIVE: CASE EVENT DATE: 20211027
